FAERS Safety Report 9934859 (Version 1)
Quarter: 2014Q1

REPORT INFORMATION
  Report Type: Report from Study
  Country: US (occurrence: US)
  Receive Date: 20140228
  Receipt Date: 20140228
  Transmission Date: 20141002
  Serious: Yes (Hospitalization)
  Sender: FDA-Public Use
  Company Number: US-PURDUE-USA-2014-0111650

PATIENT
  Age: 57 Year
  Sex: Male

DRUGS (1)
  1. OXY CR TAB [Suspect]
     Indication: BACK PAIN
     Dosage: 80 MG, Q8H
     Route: 048
     Dates: start: 20140108, end: 20140204

REACTIONS (1)
  - Pneumonia [Recovered/Resolved]
